FAERS Safety Report 18386299 (Version 1)
Quarter: 2020Q4

REPORT INFORMATION
  Report Type: Spontaneous
  Country: US (occurrence: US)
  Receive Date: 20201014
  Receipt Date: 20201014
  Transmission Date: 20210114
  Serious: Yes (Other)
  Sender: FDA-Public Use
  Company Number: None

PATIENT
  Age: 87 Year
  Sex: Male

DRUGS (11)
  1. HYDROCO/APAP [Concomitant]
     Active Substance: ACETAMINOPHEN\HYDROCODONE
  2. SSD [Concomitant]
     Active Substance: SILVER SULFADIAZINE
  3. DOXYCYCL [Concomitant]
  4. MUPIROCIN. [Concomitant]
     Active Substance: MUPIROCIN
  5. PREDNISONE. [Concomitant]
     Active Substance: PREDNISONE
  6. METHYLPRED [Concomitant]
     Active Substance: METHYLPREDNISOLONE
  7. TRAMADOL. [Concomitant]
     Active Substance: TRAMADOL
  8. XTANDI [Concomitant]
     Active Substance: ENZALUTAMIDE
  9. TRIAMCINOLON [Concomitant]
  10. ABIRATERONE ACETATE. [Suspect]
     Active Substance: ABIRATERONE ACETATE
     Indication: PROSTATE CANCER
     Route: 048
  11. CEPHALEXIN. [Concomitant]
     Active Substance: CEPHALEXIN

REACTIONS (1)
  - Lung neoplasm malignant [None]

NARRATIVE: CASE EVENT DATE: 20201013
